FAERS Safety Report 23549146 (Version 1)
Quarter: 2024Q1

REPORT INFORMATION
  Report Type: Spontaneous
  Country: US (occurrence: None)
  Receive Date: 20240220
  Receipt Date: 20240220
  Transmission Date: 20240410
  Serious: No
  Sender: FDA-Public Use
  Company Number: None

PATIENT
  Age: 37 Year
  Sex: Female

DRUGS (1)
  1. OLUMIANT [Suspect]
     Active Substance: BARICITINIB
     Indication: Alopecia areata
     Dosage: OTHER QUANTITY : TAKE 1 TABLET ;?FREQUENCY : DAILY;?
     Route: 048
     Dates: start: 202312

REACTIONS (3)
  - Injury [None]
  - Therapy interrupted [None]
  - Surgery [None]
